FAERS Safety Report 17851209 (Version 1)
Quarter: 2020Q2

REPORT INFORMATION
  Report Type: Spontaneous
  Country: US (occurrence: US)
  Receive Date: 20200602
  Receipt Date: 20200602
  Transmission Date: 20200714
  Serious: No
  Sender: FDA-Public Use
  Company Number: US-FOUNDATIONCONSUMERHC-2019-US-022478

PATIENT
  Age: 25 Year
  Sex: Female
  Weight: 67.13 kg

DRUGS (2)
  1. CALCIUM [Concomitant]
     Active Substance: CALCIUM
  2. PLAN B ONE-STEP [Suspect]
     Active Substance: LEVONORGESTREL
     Indication: POST COITAL CONTRACEPTION
     Dosage: 3 TIMES BETWEEN AUG-2019 AND SEP-2019 AND 20-NOV-2019
     Route: 048
     Dates: start: 201908, end: 20191120

REACTIONS (5)
  - Headache [Not Recovered/Not Resolved]
  - Breast tenderness [Recovered/Resolved]
  - Abdominal pain lower [Not Recovered/Not Resolved]
  - Dysmenorrhoea [Not Recovered/Not Resolved]
  - Abdominal distension [Recovered/Resolved]

NARRATIVE: CASE EVENT DATE: 201909
